FAERS Safety Report 16146150 (Version 4)
Quarter: 2019Q3

REPORT INFORMATION
  Report Type: Spontaneous
  Country: JP (occurrence: JP)
  Receive Date: 20190402
  Receipt Date: 20190730
  Transmission Date: 20191004
  Serious: Yes (Life-Threatening, Other)
  Sender: FDA-Public Use
  Company Number: JP-ROCHE-2291595

PATIENT
  Age: 78 Year
  Sex: Male

DRUGS (1)
  1. XOFLUZA [Suspect]
     Active Substance: BALOXAVIR MARBOXIL
     Indication: INFLUENZA
     Route: 048
     Dates: start: 20190212, end: 20190212

REACTIONS (5)
  - Altered state of consciousness [Unknown]
  - Prescribed underdose [Unknown]
  - Anaphylactic reaction [Recovered/Resolved]
  - Cardiac failure [Unknown]
  - Hypercapnia [Unknown]

NARRATIVE: CASE EVENT DATE: 20190212
